FAERS Safety Report 4366228-4 (Version None)
Quarter: 2004Q2

REPORT INFORMATION
  Report Type: 
  Country: None (occurrence: None)
  Receive Date: 20040527
  Receipt Date: 20040423
  Transmission Date: 20050107
  Serious: No
  Sender: FDA-Public Use
  Company Number: US-BRISTOL-MYERS SQUIBB COMPANY-12571477

PATIENT
  Age: 70 Year
  Sex: Male
  Weight: 91 kg

DRUGS (1)
  1. DEFINITY [Suspect]
     Dates: start: 20040420, end: 20040420

REACTIONS (2)
  - BACK PAIN [None]
  - RENAL PAIN [None]
